FAERS Safety Report 18769941 (Version 1)
Quarter: 2021Q1

REPORT INFORMATION
  Report Type: Spontaneous
  Country: CA (occurrence: CA)
  Receive Date: 20210122
  Receipt Date: 20210122
  Transmission Date: 20210419
  Serious: Yes (Other)
  Sender: FDA-Public Use
  Company Number: CA-TEVA-2021-CA-1870435

PATIENT
  Age: 26 Year
  Sex: Female
  Weight: 32 kg

DRUGS (8)
  1. ZONISAMIDE. [Suspect]
     Active Substance: ZONISAMIDE
     Dosage: 300 MILLIGRAM DAILY;
  2. KEPPRA [Concomitant]
     Active Substance: LEVETIRACETAM
  3. VITAMIN D [Concomitant]
     Active Substance: VITAMIN D NOS
  4. EPIVAL [Concomitant]
     Active Substance: DIVALPROEX SODIUM
  5. TEVA?CARBAMAZEPINE [Suspect]
     Active Substance: CARBAMAZEPINE
     Indication: EPILEPSY
     Dosage: 750 MILLIGRAM DAILY;
  6. NITRAZEPAM [Concomitant]
     Active Substance: NITRAZEPAM
  7. DIAZEPAM. [Concomitant]
     Active Substance: DIAZEPAM
  8. MONUROL [Concomitant]
     Active Substance: FOSFOMYCIN TROMETHAMINE

REACTIONS (7)
  - Red blood cell count decreased [Unknown]
  - Aplastic anaemia [Unknown]
  - Drug interaction [Unknown]
  - Haemoglobin decreased [Unknown]
  - Anticonvulsant drug level increased [Unknown]
  - Neutrophil count decreased [Unknown]
  - White blood cell count decreased [Unknown]
